FAERS Safety Report 21483395 (Version 1)
Quarter: 2022Q4

REPORT INFORMATION
  Report Type: Spontaneous
  Country: DE (occurrence: DE)
  Receive Date: 20221020
  Receipt Date: 20221020
  Transmission Date: 20230112
  Serious: Yes (Congenital Anomaly, Other)
  Sender: FDA-Public Use
  Company Number: DE-NOVARTISPH-NVSC2022DE231244

PATIENT
  Sex: Female

DRUGS (1)
  1. IBUPROFEN [Suspect]
     Active Substance: IBUPROFEN
     Indication: Foetal exposure during pregnancy
     Dosage: MATERNAL DOSE DURING PREGNANCY: 400-2400 MG, QD
     Route: 064

REACTIONS (4)
  - Patent ductus arteriosus [Unknown]
  - Cardiac failure [Unknown]
  - Premature baby [Unknown]
  - Foetal exposure during pregnancy [Unknown]
